FAERS Safety Report 9708230 (Version 1)
Quarter: 2013Q4

REPORT INFORMATION
  Report Type: Report from Study
  Country: US (occurrence: US)
  Receive Date: 20131125
  Receipt Date: 20131125
  Transmission Date: 20140711
  Serious: Yes (Hospitalization)
  Sender: FDA-Public Use
  Company Number: US-ACTELION-A-NJ2013-91335

PATIENT
  Age: 72 Year
  Sex: Female

DRUGS (8)
  1. TRACLEER [Suspect]
     Indication: PULMONARY ARTERIAL HYPERTENSION
     Dosage: 125 MG, BID
     Route: 048
     Dates: start: 2010
  2. TRACLEER [Suspect]
     Dosage: 62.5 UNK, UNK
     Route: 048
     Dates: end: 2010
  3. CITALOPRAM [Concomitant]
     Dosage: 5 MG, QD
  4. HYDROCHLOROTH [Concomitant]
     Dosage: 50 MG, QD
  5. ATENOLOL [Concomitant]
     Dosage: 50 MG, QD
  6. LEVOTHYROXINE [Concomitant]
     Dosage: 112 MCG, QD
  7. PIROXICAM [Concomitant]
     Dosage: 20 MG, QD
     Dates: end: 201310
  8. COUMADIN [Concomitant]
     Dosage: 2 MG, QD
     Dates: start: 201310

REACTIONS (4)
  - Cartilage injury [Recovered/Resolved]
  - Musculoskeletal discomfort [Recovering/Resolving]
  - Hip arthroplasty [Recovered/Resolved]
  - Condition aggravated [Recovered/Resolved]
